FAERS Safety Report 8917895 (Version 1)
Quarter: 2012Q4

REPORT INFORMATION
  Report Type: 
  Country: US (occurrence: US)
  Receive Date: 20121120
  Receipt Date: 20121120
  Transmission Date: 20130627
  Serious: No
  Sender: FDA-Public Use
  Company Number: US-ASTRAZENECA-2012SE15427

PATIENT
  Age: 46 Year
  Sex: Female

DRUGS (2)
  1. NEXIUM [Suspect]
     Dosage: 1 CAPSULE
     Route: 048
  2. NEXIUM [Suspect]
     Dosage: 2 CAPSULES
     Route: 048

REACTIONS (2)
  - Gastrooesophageal reflux disease [Unknown]
  - Incorrect dose administered [Unknown]
